FAERS Safety Report 5948623-2 (Version None)
Quarter: 2008Q4

REPORT INFORMATION
  Report Type: 
  Country: None (occurrence: None)
  Receive Date: 20081111
  Receipt Date: 20081031
  Transmission Date: 20090506
  Serious: Yes (Hospitalization, Other)
  Sender: FDA-Public Use
  Company Number: US-MERCK-0708USA04098

PATIENT
  Age: 62 Year
  Sex: Female
  Weight: 69 kg

DRUGS (9)
  1. FOSAMAX [Suspect]
     Indication: OSTEOPENIA
     Route: 048
     Dates: start: 20000501, end: 20060524
  2. FOSAMAX [Suspect]
     Indication: OSTEOPOROSIS
     Route: 048
     Dates: start: 20000501, end: 20060524
  3. [THERAPY UNSPECIFIED] [Concomitant]
     Indication: HYPERTENSION
     Route: 065
     Dates: start: 19960101
  4. LASIX [Concomitant]
     Indication: FLUID RETENTION
     Route: 065
     Dates: start: 19740101
  5. ALBUTEROL [Concomitant]
     Indication: ASTHMA
     Route: 065
     Dates: start: 19900101
  6. CELEXA [Concomitant]
     Indication: DEPRESSION
     Route: 065
     Dates: start: 19990101
  7. ZANTAC [Concomitant]
     Route: 065
     Dates: start: 19960101
  8. SINGULAIR [Concomitant]
     Route: 065
     Dates: start: 19990101
  9. IMITREX [Concomitant]
     Route: 065
     Dates: start: 19900101

REACTIONS (17)
  - ANXIETY [None]
  - APPETITE DISORDER [None]
  - BLADDER DISORDER [None]
  - BLOOD CHOLESTEROL INCREASED [None]
  - CATARACT [None]
  - CEREBRAL DISORDER [None]
  - CHRONIC SINUSITIS [None]
  - COUGH [None]
  - DEMENTIA [None]
  - DEPRESSION [None]
  - DYSPEPSIA [None]
  - FATIGUE [None]
  - MIGRAINE [None]
  - OSTEOMYELITIS [None]
  - OSTEONECROSIS [None]
  - TOOTH ABSCESS [None]
  - TOOTH INFECTION [None]
